FAERS Safety Report 24119769 (Version 3)
Quarter: 2024Q4

REPORT INFORMATION
  Report Type: Spontaneous
  Country: CO (occurrence: CO)
  Receive Date: 20240722
  Receipt Date: 20241007
  Transmission Date: 20250114
  Serious: Yes (Disabling)
  Sender: REGENERON
  Company Number: CO-SA-SAC20240718000692

PATIENT
  Age: 82 Year
  Sex: Female

DRUGS (2)
  1. PRALUENT [Suspect]
     Active Substance: ALIROCUMAB
     Indication: Type IIa hyperlipidaemia
     Dosage: 75 MG, QOW
     Route: 058
     Dates: start: 20240621, end: 2024
  2. PRALUENT [Suspect]
     Active Substance: ALIROCUMAB
     Dosage: 75 MG, QOW
     Route: 058
     Dates: start: 20240713, end: 2024

REACTIONS (11)
  - Fear of falling [Not Recovered/Not Resolved]
  - Balance disorder [Not Recovered/Not Resolved]
  - Pain [Not Recovered/Not Resolved]
  - Discomfort [Recovered/Resolved]
  - Decreased appetite [Recovered/Resolved]
  - Discouragement [Not Recovered/Not Resolved]
  - Cold sweat [Not Recovered/Not Resolved]
  - Headache [Recovered/Resolved]
  - Head discomfort [Recovered/Resolved]
  - Somnolence [Unknown]
  - Asthenia [Unknown]

NARRATIVE: CASE EVENT DATE: 20240101
